FAERS Safety Report 5213585-2 (Version None)
Quarter: 2007Q1

REPORT INFORMATION
  Report Type: 
  Country: None (occurrence: None)
  Receive Date: 20070119
  Receipt Date: 20070117
  Transmission Date: 20070707
  Serious: Yes (Life-Threatening, Hospitalization)
  Sender: FDA-Public Use
  Company Number: US-BRISTOL-MYERS SQUIBB COMPANY-13646062

PATIENT
  Sex: Female

DRUGS (1)
  1. TEQUIN [Suspect]

REACTIONS (3)
  - DIABETES MELLITUS [None]
  - HYPERGLYCAEMIA [None]
  - RENAL FAILURE [None]
